FAERS Safety Report 9178802 (Version 1)
Quarter: 2012Q4

REPORT INFORMATION
  Report Type: 
  Country: NL (occurrence: NL)
  Receive Date: 20121029
  Receipt Date: 20121029
  Transmission Date: 20130627
  Serious: Yes (Hospitalization, Other)
  Sender: FDA-Public Use
  Company Number: NL-ROCHE-1149625

PATIENT
  Age: 19 None
  Sex: Female
  Weight: 65 kg

DRUGS (9)
  1. XOLAIR [Suspect]
     Indication: ASTHMA
     Route: 058
     Dates: start: 20120918, end: 20120921
  2. FLIXOTIDE [Concomitant]
  3. FORADIL [Concomitant]
  4. IPRAMOL [Concomitant]
  5. PULMICORT [Concomitant]
  6. FLIXONASE [Concomitant]
  7. QVAR [Concomitant]
  8. TAVEGIL [Concomitant]
  9. EPIPEN [Concomitant]

REACTIONS (2)
  - Anaphylactic reaction [Recovered/Resolved with Sequelae]
  - Viral infection [Unknown]
